FAERS Safety Report 12186918 (Version 1)
Quarter: 2016Q1

REPORT INFORMATION
  Report Type: Spontaneous
  Country: US (occurrence: None)
  Receive Date: 20160316
  Receipt Date: 20160316
  Transmission Date: 20160526
  Serious: Yes (Hospitalization)
  Sender: FDA-Public Use
  Company Number: None

PATIENT
  Age: 82 Year
  Sex: Male
  Weight: 86.5 kg

DRUGS (2)
  1. WARFARIN [Suspect]
     Active Substance: WARFARIN
     Indication: ATRIAL FIBRILLATION
     Route: 048
     Dates: start: 20120502, end: 20151115
  2. AMIODARONE [Suspect]
     Active Substance: AMIODARONE
     Route: 048
     Dates: start: 20151102

REACTIONS (6)
  - Drug interaction [None]
  - Confusional state [None]
  - International normalised ratio increased [None]
  - Haematuria [None]
  - Contusion [None]
  - Incorrect dose administered [None]

NARRATIVE: CASE EVENT DATE: 20151114
